FAERS Safety Report 13185143 (Version 2)
Quarter: 2017Q1

REPORT INFORMATION
  Report Type: Report from Study
  Country: ES (occurrence: ES)
  Receive Date: 20170203
  Receipt Date: 20170221
  Transmission Date: 20170428
  Serious: Yes (Other)
  Sender: FDA-Public Use
  Company Number: ES-ASTRAZENECA-2017SE11269

PATIENT
  Age: 1023 Month
  Sex: Female

DRUGS (4)
  1. SEGURIL [Interacting]
     Active Substance: FUROSEMIDE
     Route: 048
     Dates: start: 2016, end: 20161006
  2. URBASON [Interacting]
     Active Substance: METHYLPREDNISOLONE
     Indication: POLYMYALGIA RHEUMATICA
     Route: 048
     Dates: start: 2016
  3. PULMICORT TURBUHALER [Suspect]
     Active Substance: BUDESONIDE
     Indication: ASTHMA
     Route: 055
     Dates: start: 2016
  4. SEGURIL [Interacting]
     Active Substance: FUROSEMIDE
     Route: 048

REACTIONS (6)
  - Decubitus ulcer [Unknown]
  - Respiratory tract infection [Unknown]
  - Drug interaction [Unknown]
  - Hypokalaemia [Recovering/Resolving]
  - Toxicity to various agents [Unknown]
  - Depression [Unknown]

NARRATIVE: CASE EVENT DATE: 201610
